FAERS Safety Report 7794768-4 (Version None)
Quarter: 2011Q4

REPORT INFORMATION
  Report Type: 
  Country: None (occurrence: None)
  Receive Date: 20111004
  Receipt Date: 20110928
  Transmission Date: 20120403
  Serious: No
  Sender: FDA-Public Use
  Company Number: US-PFIZER INC-2011230007

PATIENT
  Sex: Female

DRUGS (3)
  1. CAFFEINE CITRATE [Suspect]
     Dosage: UNK
  2. ASPARTAME [Suspect]
  3. LYRICA [Suspect]
     Dosage: UNK

REACTIONS (1)
  - PAIN [None]
